FAERS Safety Report 20064090 (Version 2)
Quarter: 2023Q1

REPORT INFORMATION
  Report Type: Report from Study
  Country: US (occurrence: US)
  Receive Date: 20211112
  Receipt Date: 20230314
  Transmission Date: 20230418
  Serious: Yes (Hospitalization, Other)
  Sender: FDA-Public Use
  Company Number: US-TAKEDA-US201847618

PATIENT
  Age: 22 Month
  Sex: Male

DRUGS (6)
  1. IDURSULFASE [Suspect]
     Active Substance: IDURSULFASE
     Indication: Mucopolysaccharidosis II
     Dosage: 0.5 MILLIGRAM/KILOGRAM, 1X/WEEK (EVERY WEEK)
     Route: 042
     Dates: start: 20090224
  2. IDURSULFASE [Suspect]
     Active Substance: IDURSULFASE
     Dosage: 0.33 MILLIGRAM/KILOGRAM, 1X/WEEK (EVERY WEEK)
     Route: 042
     Dates: start: 20090811
  3. IDURSULFASE [Suspect]
     Active Substance: IDURSULFASE
     Dosage: 0.13 MILLIGRAM/KILOGRAM, 1X/DAY:QD (ONCE DAILY)
     Route: 042
     Dates: start: 201309, end: 201705
  4. IDURSULFASE [Suspect]
     Active Substance: IDURSULFASE
     Dosage: 0.47 MILLIGRAM/KILOGRAM, 1X/WEEK (EVERY WEEK)
     Route: 042
     Dates: start: 201705
  5. OMEPRAZOLE [Concomitant]
     Active Substance: OMEPRAZOLE
     Indication: Dysphagia
     Dosage: UNK
     Route: 048
     Dates: start: 20150727, end: 20160622
  6. IBUPROFEN [Concomitant]
     Active Substance: IBUPROFEN
     Indication: Dysphagia
     Dosage: UNK
     Route: 048
     Dates: start: 20150727, end: 20161025

REACTIONS (6)
  - Obstructive sleep apnoea syndrome [Recovered/Resolved with Sequelae]
  - Bacteraemia [Recovered/Resolved]
  - Diarrhoea [Unknown]
  - Conjunctivitis [Unknown]
  - Dyskinesia [Unknown]
  - Pyrexia [Recovered/Resolved]

NARRATIVE: CASE EVENT DATE: 20090101
